FAERS Safety Report 11684916 (Version 2)
Quarter: 2015Q4

REPORT INFORMATION
  Report Type: Report from Study
  Country: DE (occurrence: DE)
  Receive Date: 20151030
  Receipt Date: 20151030
  Transmission Date: 20160304
  Serious: Yes (Other)
  Sender: FDA-Public Use
  Company Number: DE-ABBVIE-15K-062-1488171-00

PATIENT
  Age: 58 Year
  Sex: Female

DRUGS (5)
  1. COLESTYRAMINE [Concomitant]
     Active Substance: CHOLESTYRAMINE
     Indication: PRODUCT USED FOR UNKNOWN INDICATION
  2. HUMIRA [Suspect]
     Active Substance: ADALIMUMAB
     Indication: CROHN^S DISEASE
     Route: 058
     Dates: start: 20150417, end: 20151016
  3. HUMIRA [Suspect]
     Active Substance: ADALIMUMAB
     Route: 058
     Dates: start: 20151022
  4. TEBONIN [Concomitant]
     Active Substance: GINKGO
     Indication: PRODUCT USED FOR UNKNOWN INDICATION
  5. PANTOPRAZOL [Concomitant]
     Active Substance: PANTOPRAZOLE SODIUM
     Indication: PRODUCT USED FOR UNKNOWN INDICATION

REACTIONS (3)
  - Ototoxicity [Not Recovered/Not Resolved]
  - Deafness neurosensory [Not Recovered/Not Resolved]
  - Otitis media acute [Not Recovered/Not Resolved]

NARRATIVE: CASE EVENT DATE: 20151005
